FAERS Safety Report 7390312-4 (Version None)
Quarter: 2011Q2

REPORT INFORMATION
  Report Type: 
  Country: None (occurrence: None)
  Receive Date: 20110401
  Receipt Date: 20110318
  Transmission Date: 20111010
  Serious: Yes (Hospitalization)
  Sender: FDA-Public Use
  Company Number: CO-AMGEN-QUU441259

PATIENT
  Age: 49 Year
  Sex: Female
  Weight: 61.3 kg

DRUGS (13)
  1. ETANERCEPT [Suspect]
     Indication: ARTHRITIS
     Dosage: 1 ML, QWK
     Route: 058
     Dates: start: 20100823
  2. PREDNISOLONE [Concomitant]
     Dosage: 10 MG, 1X/DAY
     Route: 048
     Dates: start: 20050101
  3. FOLIC ACID [Concomitant]
     Indication: PROPHYLAXIS
     Dosage: 2 MG, QD
     Route: 048
     Dates: start: 20080101
  4. FERROUS SULFATE TAB [Concomitant]
     Dosage: 300 MG, 1X/DAY
     Route: 048
     Dates: start: 20070101
  5. OMEPRAZOLE [Concomitant]
     Dosage: 20 MG, 2X/DAY
     Route: 048
     Dates: start: 20100101
  6. METHOTREXATE [Concomitant]
     Indication: RHEUMATOID ARTHRITIS
     Dosage: 25 MG, QWK
     Route: 048
     Dates: start: 20081114
  7. ETANERCEPT [Suspect]
     Dosage: 1 ML, WEEKLY
     Route: 058
     Dates: start: 20100823
  8. FOLIC ACID [Concomitant]
     Indication: VITAMIN SUPPLEMENTATION
     Dosage: 2 MG, 1X/DAY
     Route: 048
     Dates: start: 20080101
  9. IBUPROFEN [Concomitant]
     Dosage: 800 MG, 3X/DAY
     Route: 048
     Dates: start: 20070601
  10. PREDNISOLONE [Concomitant]
     Indication: RHEUMATOID ARTHRITIS
     Dosage: 10 MG, QD
     Route: 048
     Dates: start: 20050101
  11. FERROUS SULFATE TAB [Concomitant]
     Indication: ANAEMIA PROPHYLAXIS
     Dosage: 300 MG, QD
     Route: 048
     Dates: start: 20070101
  12. IBUPROFEN [Concomitant]
     Indication: RHEUMATOID ARTHRITIS
     Dosage: 800 MG, TID
     Route: 048
     Dates: start: 20070601
  13. OMEPRAZOLE [Concomitant]
     Indication: GASTRITIS PROPHYLAXIS
     Dosage: 20 MG, Q12H
     Route: 048
     Dates: start: 20100101

REACTIONS (3)
  - DENGUE FEVER [None]
  - PYREXIA [None]
  - THROMBOCYTOPENIA [None]
